FAERS Safety Report 6266809-7 (Version None)
Quarter: 2009Q3

REPORT INFORMATION
  Report Type: 
  Country: None (occurrence: None)
  Receive Date: 20090709
  Receipt Date: 20090709
  Transmission Date: 20100115
  Serious: Yes (Life-Threatening)
  Sender: FDA-Public Use
  Company Number: None

PATIENT
  Sex: Female
  Weight: 80.7403 kg

DRUGS (2)
  1. LORATADINE [Suspect]
     Indication: HYPERSENSITIVITY
     Dosage: 10MG 1 A DAY
     Dates: start: 20090612, end: 20090620
  2. LORATADINE [Suspect]
     Indication: MIDDLE EAR EFFUSION
     Dosage: 10MG 1 A DAY
     Dates: start: 20090612, end: 20090620

REACTIONS (5)
  - CHEST DISCOMFORT [None]
  - DYSPNOEA [None]
  - FATIGUE [None]
  - GAIT DISTURBANCE [None]
  - SWELLING FACE [None]
